FAERS Safety Report 21720360 (Version 1)
Quarter: 2022Q4

REPORT INFORMATION
  Report Type: Spontaneous
  Country: US (occurrence: US)
  Receive Date: 20221213
  Receipt Date: 20221213
  Transmission Date: 20230113
  Serious: No
  Sender: FDA-Public Use
  Company Number: US-BIOGEN-2022BI01151120

PATIENT
  Sex: Female

DRUGS (4)
  1. VUMERITY [Suspect]
     Active Substance: DIROXIMEL FUMARATE
     Indication: Multiple sclerosis
     Route: 050
     Dates: start: 20211020, end: 202208
  2. TRAMADOL HCL [Concomitant]
     Active Substance: TRAMADOL HYDROCHLORIDE
     Route: 050
  3. VITAMIN D [Concomitant]
     Active Substance: VITAMIN D NOS
     Route: 050
  4. VITAMIN B12 [Concomitant]
     Active Substance: CYANOCOBALAMIN
     Route: 050

REACTIONS (5)
  - Treatment noncompliance [Unknown]
  - Abdominal pain lower [Unknown]
  - Gastrointestinal disorder [Unknown]
  - Gastric disorder [Unknown]
  - Abdominal pain upper [Unknown]
